FAERS Safety Report 10943386 (Version 4)
Quarter: 2018Q3

REPORT INFORMATION
  Report Type: Spontaneous
  Country: US (occurrence: US)
  Receive Date: 20150322
  Receipt Date: 20180827
  Transmission Date: 20181010
  Serious: Yes (Hospitalization)
  Sender: FDA-Public Use
  Company Number: US-JNJFOC-20150121295

PATIENT
  Sex: Male
  Weight: 99.79 kg

DRUGS (18)
  1. IMODIUM [Concomitant]
     Active Substance: LOPERAMIDE HYDROCHLORIDE
     Indication: DIARRHOEA
     Route: 065
  2. LORAZEPAM. [Concomitant]
     Active Substance: LORAZEPAM
     Indication: SLEEP DISORDER
     Route: 065
     Dates: start: 1993
  3. RISPERDAL CONSTA [Suspect]
     Active Substance: RISPERIDONE
     Indication: SCHIZOPHRENIA
     Dosage: 2002 OR 2003
     Route: 030
     Dates: start: 2005, end: 2005
  4. RISPERDAL [Suspect]
     Active Substance: RISPERIDONE
     Indication: SCHIZOPHRENIA
     Dosage: 3 OR 4 MG
     Route: 048
     Dates: start: 1996, end: 2005
  5. RISPERIDONE PATRIOT [Suspect]
     Active Substance: RISPERIDONE
     Indication: SCHIZOPHRENIA
     Route: 048
  6. HALDOL DECANOATE [Suspect]
     Active Substance: HALOPERIDOL DECANOATE
     Indication: SCHIZOPHRENIA
     Route: 030
     Dates: start: 1991, end: 1996
  7. CITALOPRAM [Concomitant]
     Active Substance: CITALOPRAM HYDROBROMIDE
     Route: 065
  8. TYLENOL [Concomitant]
     Active Substance: ACETAMINOPHEN
     Indication: PYREXIA
     Dosage: OR EVERY SIX HOURS
     Route: 065
  9. CAFFEINE. [Concomitant]
     Active Substance: CAFFEINE
     Route: 065
  10. MECLIZINE HYDROCHLORIDE. [Concomitant]
     Active Substance: MECLIZINE HYDROCHLORIDE
     Indication: MOTION SICKNESS
     Dosage: 1?2 TABLETS DAILY OR AS NEEDED
     Route: 065
  11. DARIFENACIN. [Concomitant]
     Active Substance: DARIFENACIN
     Indication: HYPERTONIC BLADDER
     Dosage: WITH BREAKFAST
     Route: 065
  12. LORAZEPAM. [Concomitant]
     Active Substance: LORAZEPAM
     Indication: ANXIETY
     Route: 065
     Dates: start: 1993
  13. VITAMIN D [Concomitant]
     Active Substance: CHOLECALCIFEROL
     Route: 065
  14. RISPERDAL CONSTA [Suspect]
     Active Substance: RISPERIDONE
     Indication: SCHIZOPHRENIA
     Dosage: IN MAY OR JUNE
     Route: 030
     Dates: start: 2005
  15. HALDOL [Suspect]
     Active Substance: HALOPERIDOL
     Indication: SCHIZOPHRENIA
     Route: 048
     Dates: start: 1991, end: 1996
  16. LISINOPRIL. [Suspect]
     Active Substance: LISINOPRIL
     Indication: HYPERTENSION
     Route: 065
  17. RISPERDAL CONSTA [Suspect]
     Active Substance: RISPERIDONE
     Indication: SCHIZOPHRENIA
     Route: 030
     Dates: start: 2005, end: 2005
  18. TYLENOL [Concomitant]
     Active Substance: ACETAMINOPHEN
     Indication: PAIN
     Dosage: OR EVERY SIX HOURS
     Route: 065

REACTIONS (11)
  - Blood prolactin increased [Unknown]
  - Weight increased [Not Recovered/Not Resolved]
  - Hypotension [Unknown]
  - Depression [Unknown]
  - Syncope [Unknown]
  - Musculoskeletal stiffness [Unknown]
  - Gynaecomastia [Unknown]
  - Hallucination, auditory [Unknown]
  - Drug ineffective [Unknown]
  - Flat affect [Unknown]
  - Inappropriate schedule of drug administration [Unknown]

NARRATIVE: CASE EVENT DATE: 1991
